FAERS Safety Report 6622241-5 (Version None)
Quarter: 2010Q1

REPORT INFORMATION
  Report Type: 
  Country: None (occurrence: None)
  Receive Date: 20100310
  Receipt Date: 20100223
  Transmission Date: 20100710
  Serious: Yes (Other)
  Sender: FDA-Public Use
  Company Number: US-RANBAXY-2010RR-32073

PATIENT
  Sex: Female

DRUGS (1)
  1. GABAPENTIN [Suspect]
     Dosage: 600 MG, UNK
     Route: 048

REACTIONS (12)
  - AMNESTIC DISORDER [None]
  - ANXIETY [None]
  - ATAXIA [None]
  - CONFUSIONAL STATE [None]
  - DISORIENTATION [None]
  - DIZZINESS [None]
  - DRUG DISPENSING ERROR [None]
  - MALAISE [None]
  - PANIC DISORDER [None]
  - PRODUCT COMMINGLING [None]
  - SYNCOPE [None]
  - WRONG DRUG ADMINISTERED [None]
